FAERS Safety Report 7240449-5 (Version None)
Quarter: 2011Q1

REPORT INFORMATION
  Report Type: 
  Country: None (occurrence: None)
  Receive Date: 20110124
  Receipt Date: 20110121
  Transmission Date: 20110831
  Serious: Yes (Hospitalization)
  Sender: FDA-Public Use
  Company Number: US-PFIZER INC-2011015683

PATIENT
  Sex: Male
  Weight: 90.703 kg

DRUGS (3)
  1. DILAUDID [Suspect]
     Indication: PAIN
     Dosage: UNK
     Dates: start: 20110115, end: 20110116
  2. CHANTIX [Suspect]
     Indication: SMOKING CESSATION THERAPY
     Dosage: 1 MG, 2X/DAY
     Route: 048
     Dates: start: 20110101, end: 20110115
  3. ZOLOFT [Concomitant]
     Indication: DEPRESSION
     Dosage: 50 MG, 1X/DAY
     Route: 048

REACTIONS (5)
  - GASTRITIS [None]
  - MIGRAINE [None]
  - COLD SWEAT [None]
  - OROPHARYNGEAL PAIN [None]
  - NAUSEA [None]
